FAERS Safety Report 5473356-9 (Version None)
Quarter: 2007Q3

REPORT INFORMATION
  Report Type: 
  Country: None (occurrence: None)
  Receive Date: 20070824
  Receipt Date: 20070427
  Transmission Date: 20080115
  Serious: Yes (Life-Threatening, Hospitalization, Disabling, Other)
  Sender: FDA-Public Use
  Company Number: WAES 0703USA05635

PATIENT
  Age: 79 Year
  Sex: Female
  Weight: 68.4932 kg

DRUGS (5)
  1. VYTORIN [Suspect]
     Indication: HYPERLIPIDAEMIA
     Dosage: 10-80 MG; PO
     Route: 048
     Dates: start: 20070302, end: 20070326
  2. CALAN [Suspect]
     Indication: HYPERTENSION
     Dosage: 240 MG DAILY; PO
     Route: 048
  3. COZAAR [Concomitant]
  4. NEURONTIN [Concomitant]
  5. SYNTHROID [Concomitant]

REACTIONS (2)
  - DRUG INTERACTION [None]
  - RHABDOMYOLYSIS [None]
